FAERS Safety Report 7884019-4 (Version None)
Quarter: 2011Q4

REPORT INFORMATION
  Report Type: 
  Country: None (occurrence: None)
  Receive Date: 20111102
  Receipt Date: 20111026
  Transmission Date: 20120403
  Serious: Yes (Hospitalization, Other)
  Sender: FDA-Public Use
  Company Number: PHHY2011FR95322

PATIENT
  Sex: Female

DRUGS (4)
  1. TAXOL [Concomitant]
     Dosage: 03 DF, PER WEEK
     Dates: start: 20110608, end: 20110715
  2. ZOMETA [Suspect]
     Dates: start: 20110608, end: 20110801
  3. TAXOTERE [Concomitant]
     Dosage: 75 MG, UNK
     Route: 042
     Dates: start: 20110517
  4. CLASTOBAN [Suspect]
     Dates: start: 20110301, end: 20110601

REACTIONS (22)
  - CHOLESTASIS [None]
  - BLOOD ALKALINE PHOSPHATASE INCREASED [None]
  - ALANINE AMINOTRANSFERASE INCREASED [None]
  - SYSTEMIC INFLAMMATORY RESPONSE SYNDROME [None]
  - HAEMOGLOBIN DECREASED [None]
  - BLOOD LACTATE DEHYDROGENASE INCREASED [None]
  - IRON OVERLOAD [None]
  - LIVER DISORDER [None]
  - BLOOD PRESSURE DECREASED [None]
  - C-REACTIVE PROTEIN INCREASED [None]
  - ANTINUCLEAR ANTIBODY POSITIVE [None]
  - HAPTOGLOBIN INCREASED [None]
  - HYPERTHERMIA [None]
  - CHILLS [None]
  - GAMMA-GLUTAMYLTRANSFERASE INCREASED [None]
  - ANTI-THYROID ANTIBODY POSITIVE [None]
  - HYPOALBUMINAEMIA [None]
  - ALPHA GLOBULIN INCREASED [None]
  - RED BLOOD CELL SEDIMENTATION RATE INCREASED [None]
  - HEART RATE INCREASED [None]
  - ANAEMIA [None]
  - ASPARTATE AMINOTRANSFERASE INCREASED [None]
